FAERS Safety Report 8317459-X (Version None)
Quarter: 2012Q2

REPORT INFORMATION
  Report Type: 
  Country: None (occurrence: None)
  Receive Date: 20120427
  Receipt Date: 20120417
  Transmission Date: 20120825
  Serious: Yes (Death, Hospitalization)
  Sender: FDA-Public Use
  Company Number: FI-ELI_LILLY_AND_COMPANY-FI201203002022

PATIENT
  Sex: Female

DRUGS (8)
  1. IRON [Concomitant]
     Dosage: UNK
     Dates: start: 20110103
  2. PRIMASPAN [Concomitant]
     Indication: ANTICOAGULANT THERAPY
     Dosage: 50 MG, UNK
  3. ACETAMINOPHEN [Concomitant]
     Indication: PAIN
  4. OBSIDAN [Concomitant]
     Dosage: 1 DF, QD
     Dates: start: 20110103
  5. FORTEO [Suspect]
     Indication: OSTEOPOROSIS
     Dosage: 20 UG, QD
     Route: 058
     Dates: start: 20110103
  6. DUREKAL [Concomitant]
     Indication: MINERAL SUPPLEMENTATION
  7. CALCIUM +VIT D [Concomitant]
     Indication: MEDICAL DIET
  8. STATIN                             /00084401/ [Concomitant]
     Indication: HYPERCHOLESTEROLAEMIA

REACTIONS (2)
  - DEATH [None]
  - MELAENA [None]
